FAERS Safety Report 7328249-9 (Version None)
Quarter: 2011Q1

REPORT INFORMATION
  Report Type: 
  Country: None (occurrence: None)
  Receive Date: 20110303
  Receipt Date: 20110217
  Transmission Date: 20110831
  Serious: Yes (Hospitalization)
  Sender: FDA-Public Use
  Company Number: JP-RANBAXY-2010RR-34881

PATIENT
  Age: 84 Year
  Sex: Female
  Weight: 65 kg

DRUGS (7)
  1. ENDOXANE [Suspect]
     Dosage: 50 MG, UNK
  2. ROXATIDINE ACETATE HCL [Suspect]
     Dosage: UNK
     Dates: start: 20080701
  3. CANDESARTAN [Suspect]
     Dosage: UNK
     Dates: start: 20080701
  4. PRAVASTATIN [Suspect]
     Dosage: UNK
     Dates: start: 20080701
  5. AMLODIPINE [Suspect]
     Dosage: UNK
     Dates: start: 20080701
  6. FUROSEMIDE [Suspect]
     Dosage: UNK
     Dates: start: 20080701
  7. HEPARIN [Suspect]
     Dosage: 8000 IU, UNK

REACTIONS (3)
  - DISSEMINATED INTRAVASCULAR COAGULATION [None]
  - PNEUMONIA [None]
  - HEPARIN-INDUCED THROMBOCYTOPENIA [None]
